FAERS Safety Report 4414734-6 (Version None)
Quarter: 2004Q3

REPORT INFORMATION
  Report Type: 
  Country: None (occurrence: None)
  Receive Date: 20040804
  Receipt Date: 20030801
  Transmission Date: 20050211
  Serious: No
  Sender: FDA-Public Use
  Company Number: US-BRISTOL-MYERS SQUIBB COMPANY-12343463

PATIENT
  Age: 66 Year
  Sex: Female
  Weight: 120 kg

DRUGS (10)
  1. GLUCOVANCE [Suspect]
     Indication: DIABETES MELLITUS
     Route: 048
     Dates: start: 20030724
  2. LANOXIN [Concomitant]
  3. ACTOS [Concomitant]
  4. PRINZIDE [Concomitant]
  5. BLOOD PRESSURE MEDICATION [Concomitant]
     Route: 062
  6. PLAVIX [Concomitant]
  7. ZOLOFT [Concomitant]
  8. PROTONIX [Concomitant]
  9. LASIX [Concomitant]
  10. HYOSCYAMINE [Concomitant]

REACTIONS (2)
  - BLOOD GLUCOSE INCREASED [None]
  - PALPITATIONS [None]
